FAERS Safety Report 17355012 (Version 5)
Quarter: 2021Q3

REPORT INFORMATION
  Report Type: Report from Study
  Country: CA (occurrence: CA)
  Receive Date: 20200131
  Receipt Date: 20210908
  Transmission Date: 20211014
  Serious: Yes (Hospitalization, Other)
  Sender: FDA-Public Use
  Company Number: NVSC2020CA023688

PATIENT
  Age: 55 Year
  Sex: Female

DRUGS (1)
  1. COSENTYX [Suspect]
     Active Substance: SECUKINUMAB
     Indication: PSORIASIS
     Dosage: 300 MG, QMO
     Route: 058
     Dates: start: 20191203

REACTIONS (11)
  - Musculoskeletal stiffness [Recovered/Resolved]
  - Necrotising soft tissue infection [Unknown]
  - Cellulitis [Unknown]
  - Cellulitis [Recovered/Resolved]
  - Furuncle [Unknown]
  - Wound [Unknown]
  - Nausea [Not Recovered/Not Resolved]
  - Wound infection [Unknown]
  - Gait disturbance [Unknown]
  - Renal impairment [Unknown]
  - Arthralgia [Recovered/Resolved]

NARRATIVE: CASE EVENT DATE: 2021
